FAERS Safety Report 19249452 (Version 3)
Quarter: 2022Q2

REPORT INFORMATION
  Report Type: Spontaneous
  Country: CA (occurrence: CA)
  Receive Date: 20210512
  Receipt Date: 20220421
  Transmission Date: 20220720
  Serious: Yes (Death, Other)
  Sender: FDA-Public Use
  Company Number: CA-SAMSUNG BIOEPIS-SB-2021-11408

PATIENT
  Age: 84 Year
  Sex: Female
  Weight: 50 kg

DRUGS (4)
  1. INFLIXIMAB [Suspect]
     Active Substance: INFLIXIMAB
     Indication: Crohn^s disease
     Route: 042
  2. DIPHENHYDRAMINE [Concomitant]
     Active Substance: DIPHENHYDRAMINE
     Indication: Premedication
     Route: 065
  3. HYDROCORTISONE [Concomitant]
     Active Substance: HYDROCORTISONE
     Indication: Premedication
     Route: 065
  4. PREDNISONE [Concomitant]
     Active Substance: PREDNISONE
     Indication: Asthma
     Route: 065

REACTIONS (19)
  - Death [Fatal]
  - Arthralgia [Fatal]
  - Asthma [Fatal]
  - Blood pressure fluctuation [Fatal]
  - Blood pressure increased [Fatal]
  - Eczema [Fatal]
  - Eye pruritus [Fatal]
  - Eye swelling [Fatal]
  - Lacrimation increased [Fatal]
  - Musculoskeletal stiffness [Fatal]
  - Ocular hyperaemia [Fatal]
  - Pain [Fatal]
  - Periorbital swelling [Fatal]
  - Rheumatoid arthritis [Fatal]
  - Rhinorrhoea [Fatal]
  - Condition aggravated [Fatal]
  - Proctalgia [Fatal]
  - Dysentery [Fatal]
  - Off label use [Fatal]
